FAERS Safety Report 12801490 (Version 1)
Quarter: 2016Q4

REPORT INFORMATION
  Report Type: Report from Study
  Country: US (occurrence: US)
  Receive Date: 20161003
  Receipt Date: 20161003
  Transmission Date: 20170207
  Serious: Yes (Hospitalization, Other)
  Sender: FDA-Public Use
  Company Number: US-ROCHE-1002591

PATIENT
  Age: 70 Year
  Sex: Female
  Weight: 73.6 kg

DRUGS (13)
  1. BEVACIZUMAB [Suspect]
     Active Substance: BEVACIZUMAB
     Route: 042
     Dates: start: 20110518
  2. BEVACIZUMAB [Suspect]
     Active Substance: BEVACIZUMAB
     Route: 042
     Dates: start: 20110420
  3. BEVACIZUMAB [Suspect]
     Active Substance: BEVACIZUMAB
     Route: 042
     Dates: start: 20110720
  4. IXABEPILONE [Suspect]
     Active Substance: IXABEPILONE
     Indication: ENDOMETRIAL ADENOCARCINOMA
     Dosage: LAST DOSE ADMINISTERED ON 20/JUL/2011. DRUG DISCONTINUED ON 09/NOV/2011.
     Route: 042
     Dates: start: 20110302
  5. IXABEPILONE [Suspect]
     Active Substance: IXABEPILONE
     Route: 042
     Dates: start: 20110720
  6. IXABEPILONE [Suspect]
     Active Substance: IXABEPILONE
     Route: 042
     Dates: start: 20110323
  7. BEVACIZUMAB [Suspect]
     Active Substance: BEVACIZUMAB
     Route: 042
     Dates: start: 20110323
  8. IXABEPILONE [Suspect]
     Active Substance: IXABEPILONE
     Route: 042
     Dates: start: 20110420
  9. IXABEPILONE [Suspect]
     Active Substance: IXABEPILONE
     Route: 042
     Dates: start: 20110518
  10. CARBOPLATIN. [Suspect]
     Active Substance: CARBOPLATIN
     Indication: ENDOMETRIAL ADENOCARCINOMA
     Dosage: LAST DOSE ADMINISTERED ON 20/JUL/2011.
     Route: 042
  11. BEVACIZUMAB [Suspect]
     Active Substance: BEVACIZUMAB
     Indication: ENDOMETRIAL ADENOCARCINOMA
     Dosage: LAST DOSE ADMINISTERED ON 20/JUL/2011. DRUG DISCONTINUED ON 09/NOV/2011.
     Route: 042
     Dates: start: 20110302
  12. BEVACIZUMAB [Suspect]
     Active Substance: BEVACIZUMAB
     Route: 042
     Dates: start: 20110615
  13. IXABEPILONE [Suspect]
     Active Substance: IXABEPILONE
     Route: 042
     Dates: start: 20110615

REACTIONS (12)
  - Arthralgia [Unknown]
  - Fatigue [Unknown]
  - Hyponatraemia [Unknown]
  - White blood cell count decreased [Unknown]
  - Dyspnoea [Unknown]
  - Febrile neutropenia [Unknown]
  - Neutrophil count decreased [Unknown]
  - Pain in extremity [Unknown]
  - Decreased appetite [Unknown]
  - Arthralgia [Recovered/Resolved with Sequelae]
  - Platelet count decreased [Unknown]
  - Anaemia [Unknown]

NARRATIVE: CASE EVENT DATE: 20110817
